FAERS Safety Report 6178598-5 (Version None)
Quarter: 2009Q2

REPORT INFORMATION
  Report Type: 
  Country: None (occurrence: None)
  Receive Date: 20090430
  Receipt Date: 20090422
  Transmission Date: 20091009
  Serious: Yes (Hospitalization)
  Sender: FDA-Public Use
  Company Number: 2009004225

PATIENT
  Age: 55 Year
  Sex: Female

DRUGS (8)
  1. MODAFINIL [Suspect]
     Indication: PROGRESSIVE MULTIPLE SCLEROSIS
     Dosage: 2000 MG (2000 MG,1 IN 1,ONCE),ORAL ; 400 MG (400 MG,1 IN 1 D),ORAL
     Route: 048
     Dates: start: 20090224, end: 20090224
  2. MODAFINIL [Suspect]
     Indication: PROGRESSIVE MULTIPLE SCLEROSIS
     Dosage: 2000 MG (2000 MG,1 IN 1,ONCE),ORAL ; 400 MG (400 MG,1 IN 1 D),ORAL
     Route: 048
     Dates: start: 20070101
  3. VAGIFEM [Concomitant]
  4. ARTONIL (RANITIDINE HYDROCHLORIDE) [Concomitant]
  5. ACETAMINOPHEN [Concomitant]
  6. IBUPROFEN TABLETS [Concomitant]
  7. HYDROCHLOROTHIAZIDE AND AMLODIRDE HYDROCHLORIDE [Concomitant]
  8. TOLTERODINE TARTRATE [Concomitant]

REACTIONS (3)
  - DELUSIONAL DISORDER, PERSECUTORY TYPE [None]
  - INCORRECT DOSE ADMINISTERED [None]
  - SUICIDE ATTEMPT [None]
